FAERS Safety Report 11996041 (Version 1)
Quarter: 2016Q1

REPORT INFORMATION
  Report Type: Report from Study
  Country: DE (occurrence: DE)
  Receive Date: 20160203
  Receipt Date: 20160203
  Transmission Date: 20160526
  Serious: Yes (Hospitalization)
  Sender: FDA-Public Use
  Company Number: DE-BAYER-2016-021789

PATIENT
  Age: 85 Year
  Sex: Female
  Weight: 60 kg

DRUGS (12)
  1. TEMSIROLIMUS [Suspect]
     Active Substance: TEMSIROLIMUS
     Indication: METASTATIC MALIGNANT MELANOMA
     Dosage: 15 MG, UNK
     Route: 042
     Dates: start: 20120702, end: 20121015
  2. METOPROLOL. [Concomitant]
     Active Substance: METOPROLOL
     Indication: HYPERTENSION
     Dosage: 50 MG, BID
     Route: 048
  3. RAMIPRIL [RAMIPRIL] [Concomitant]
     Indication: HYPERTENSION
     Dosage: 5 MG, QD
     Route: 048
  4. FUROSEMIDE. [Concomitant]
     Active Substance: FUROSEMIDE
     Indication: OEDEMA PERIPHERAL
     Dosage: 20 MG, QD
     Route: 048
     Dates: start: 20100813
  5. PANTOPRAZOLE [Concomitant]
     Active Substance: PANTOPRAZOLE SODIUM
     Indication: PROPHYLAXIS
     Dosage: 20 MG, QD
     Route: 048
     Dates: start: 20120709
  6. FESOTERODINE [Concomitant]
     Active Substance: FESOTERODINE
     Indication: URINARY INCONTINENCE
     Dosage: 4 MG, HS
     Dates: start: 20120822
  7. KALINOR [Concomitant]
     Active Substance: POTASSIUM CITRATE
     Indication: PROPHYLAXIS
     Dosage: 8 DF, 2 IN MORNING, 1 IN MORNING AND 2 IN NIGHT
     Dates: start: 20120813
  8. TROFOSFAMIDE [Suspect]
     Active Substance: TROFOSFAMIDE
     Indication: METASTATIC MALIGNANT MELANOMA
     Dosage: 150 MG, QD
     Route: 048
     Dates: start: 20120702, end: 20121020
  9. DACARBAZINE. [Suspect]
     Active Substance: DACARBAZINE
     Indication: METASTATIC MALIGNANT MELANOMA
     Route: 042
  10. NITRENDIPIN [Concomitant]
     Active Substance: NITRENDIPINE
     Indication: HYPERTENSION
     Dosage: 20 MG, BID
     Route: 048
  11. PIOGLITAZONE HYDROCHLORIDE. [Suspect]
     Active Substance: PIOGLITAZONE HYDROCHLORIDE
     Indication: METASTATIC MALIGNANT MELANOMA
     Dosage: 60 MG, UNK
     Route: 048
     Dates: start: 20120702, end: 20121020
  12. ETORICOXIB [Suspect]
     Active Substance: ETORICOXIB
     Indication: METASTATIC MALIGNANT MELANOMA
     Dosage: 60 MG, UNK
     Route: 048
     Dates: start: 20120702, end: 20121020

REACTIONS (3)
  - Urinary tract infection [Recovered/Resolved]
  - Pyrexia [Recovered/Resolved]
  - Chills [Recovered/Resolved]

NARRATIVE: CASE EVENT DATE: 20121020
